FAERS Safety Report 15718868 (Version 1)
Quarter: 2018Q4

REPORT INFORMATION
  Report Type: Spontaneous
  Country: US (occurrence: US)
  Receive Date: 20181213
  Receipt Date: 20181213
  Transmission Date: 20190205
  Serious: Yes (Other)
  Sender: FDA-Public Use
  Company Number: None

PATIENT
  Age: 30 Year
  Sex: Female
  Weight: 94.95 kg

DRUGS (6)
  1. LISINOPRIL. [Concomitant]
     Active Substance: LISINOPRIL
     Dates: start: 20181201
  2. OMEPRAZOLE. [Concomitant]
     Active Substance: OMEPRAZOLE
     Dates: start: 20181201
  3. TRADJENTA [Concomitant]
     Active Substance: LINAGLIPTIN
     Dates: start: 20181201
  4. METFORMIN ER [Suspect]
     Active Substance: METFORMIN HYDROCHLORIDE
     Dates: start: 20181212, end: 20181213
  5. METOPROLOL. [Concomitant]
     Active Substance: METOPROLOL
     Dates: start: 20181201
  6. IBUPROFEN. [Concomitant]
     Active Substance: IBUPROFEN
     Dates: start: 20181201

REACTIONS (1)
  - Vomiting [None]

NARRATIVE: CASE EVENT DATE: 20181212
